FAERS Safety Report 10057404 (Version 1)
Quarter: 2014Q2

REPORT INFORMATION
  Report Type: Spontaneous
  Country: IT (occurrence: IT)
  Receive Date: 20140403
  Receipt Date: 20140403
  Transmission Date: 20141212
  Serious: Yes (Hospitalization)
  Sender: FDA-Public Use
  Company Number: IT-TEVA-473042ISR

PATIENT
  Age: 63 Year
  Sex: Female

DRUGS (3)
  1. RIBAVIRIN [Suspect]
     Indication: HEPATITIS C
     Dosage: 800 MILLIGRAM DAILY; 800 MG DAILY
     Route: 048
     Dates: end: 20140203
  2. INCIVO - JANSSEN-CILAG INTERNATIONAL N.V. [Suspect]
     Indication: HEPATITIS C
     Dosage: 750 MG DAILY
     Route: 048
     Dates: end: 20140203
  3. PEGASYS [Concomitant]
     Indication: HEPATITIS C
     Dosage: 180 UG
     Route: 058

REACTIONS (3)
  - Anaemia [Recovering/Resolving]
  - Asthenia [Recovering/Resolving]
  - Tachycardia [Recovering/Resolving]
